FAERS Safety Report 11512560 (Version 1)
Quarter: 2015Q3

REPORT INFORMATION
  Report Type: Spontaneous
  Country: US (occurrence: None)
  Receive Date: 20150915
  Receipt Date: 20150915
  Transmission Date: 20151125
  Serious: No
  Sender: FDA-Public Use
  Company Number: None

PATIENT
  Age: 66 Year
  Sex: Female

DRUGS (12)
  1. XELJANZ [Suspect]
     Active Substance: TOFACITINIB CITRATE
     Indication: RHEUMATOID ARTHRITIS
     Route: 048
     Dates: start: 20150824
  2. FISH OIL [Concomitant]
     Active Substance: FISH OIL
  3. CALCIUM [Concomitant]
     Active Substance: CALCIUM
  4. BIOTENE [Concomitant]
  5. TRAMADOL. [Concomitant]
     Active Substance: TRAMADOL
  6. VITAMIN D [Concomitant]
     Active Substance: CHOLECALCIFEROL
  7. COZAAR [Concomitant]
     Active Substance: LOSARTAN POTASSIUM
  8. OMEPRAZOLE. [Concomitant]
     Active Substance: OMEPRAZOLE
  9. DULOXETINE. [Concomitant]
     Active Substance: DULOXETINE
  10. VIT B [Concomitant]
     Active Substance: VITAMINS
  11. RED YEAST RICE [Concomitant]
     Active Substance: DIETARY SUPPLEMENT
  12. MOBIC [Concomitant]
     Active Substance: MELOXICAM

REACTIONS (5)
  - Arthralgia [None]
  - Constipation [None]
  - Nausea [None]
  - Fatigue [None]
  - Condition aggravated [None]

NARRATIVE: CASE EVENT DATE: 20150914
